FAERS Safety Report 9780856 (Version 1)
Quarter: 2013Q4

REPORT INFORMATION
  Report Type: Spontaneous
  Country: US (occurrence: US)
  Receive Date: 20131224
  Receipt Date: 20131224
  Transmission Date: 20140711
  Serious: Yes (Hospitalization, Other)
  Sender: FDA-Public Use
  Company Number: US-ELI_LILLY_AND_COMPANY-US201312006520

PATIENT
  Sex: Female

DRUGS (20)
  1. CYMBALTA [Suspect]
     Indication: DEPRESSION
     Dosage: 60 MG, QD
     Route: 065
  2. CYMBALTA [Suspect]
     Indication: PAIN
  3. CAPTOPRIL [Suspect]
     Indication: PRODUCT USED FOR UNKNOWN INDICATION
     Dosage: UNK
     Route: 065
     Dates: end: 20131216
  4. ASPIRIN [Concomitant]
  5. WARFARIN [Concomitant]
  6. CARVEDILOL [Concomitant]
  7. SIMVASTATIN [Concomitant]
  8. VITAMIN D3 [Concomitant]
  9. FERROUS SULFATE [Concomitant]
  10. PANTOPRAZOLE [Concomitant]
  11. VITAMIN K                          /00032401/ [Concomitant]
  12. ALLOPURINOL [Concomitant]
  13. VITAMIN B-12 [Concomitant]
  14. CEFTRIAXONE [Concomitant]
  15. LANTUS [Concomitant]
  16. LISPRO INSULIN [Concomitant]
  17. COLCHICINE [Concomitant]
     Dosage: UNK
     Dates: end: 20131216
  18. FLUOXYMESTERONE [Concomitant]
     Dosage: UNK
     Dates: end: 20131216
  19. POTASSIUM CHLORIDE [Concomitant]
     Dosage: UNK
     Dates: end: 20131216
  20. JANUVIA [Concomitant]
     Dosage: UNK
     Dates: end: 20131216

REACTIONS (1)
  - Renal failure acute [Not Recovered/Not Resolved]
